FAERS Safety Report 24033010 (Version 2)
Quarter: 2024Q3

REPORT INFORMATION
  Report Type: Spontaneous
  Country: US (occurrence: US)
  Receive Date: 20240701
  Receipt Date: 20240827
  Transmission Date: 20241017
  Serious: No
  Sender: AMGEN
  Company Number: US-AMGEN-USASP2024127489

PATIENT
  Sex: Female

DRUGS (1)
  1. PROCYSBI [Suspect]
     Active Substance: CYSTEAMINE BITARTRATE
     Indication: Cystinosis
     Dosage: 150 MILLIGRAM, Q12H (2 CAPSULES)
     Route: 048

REACTIONS (5)
  - Fall [Unknown]
  - Asthenia [Unknown]
  - Balance disorder [Unknown]
  - Treatment noncompliance [Unknown]
  - Fatigue [Unknown]
